FAERS Safety Report 8541851-1 (Version None)
Quarter: 2012Q3

REPORT INFORMATION
  Report Type: 
  Country: None (occurrence: None)
  Receive Date: 20120726
  Receipt Date: 20110908
  Transmission Date: 20120928
  Serious: No
  Sender: FDA-Public Use
  Company Number: US-ASTRAZENECA-2011SE54405

PATIENT
  Age: 53 Year
  Sex: Female

DRUGS (1)
  1. SEROQUEL XR [Suspect]
     Route: 048

REACTIONS (6)
  - MEMORY IMPAIRMENT [None]
  - FATIGUE [None]
  - ANKYLOSING SPONDYLITIS [None]
  - FIBROMYALGIA [None]
  - GENERAL PHYSICAL HEALTH DETERIORATION [None]
  - DISTURBANCE IN ATTENTION [None]
